FAERS Safety Report 9853286 (Version 2)
Quarter: 2014Q1

REPORT INFORMATION
  Report Type: Spontaneous
  Country: CA (occurrence: CA)
  Receive Date: 20140129
  Receipt Date: 20140205
  Transmission Date: 20141002
  Serious: Yes (Other)
  Sender: FDA-Public Use
  Company Number: CA-JNJFOC-20140117098

PATIENT
  Sex: Male
  Weight: 92.99 kg

DRUGS (2)
  1. ZYTIGA [Suspect]
     Indication: PROSTATE CANCER METASTATIC
     Route: 048
  2. LACTOSE [Suspect]
     Indication: LACTOSE INTOLERANCE
     Route: 065

REACTIONS (5)
  - Weight decreased [Unknown]
  - Arthralgia [Unknown]
  - Decreased appetite [Unknown]
  - Volume blood decreased [Unknown]
  - Asthenia [Unknown]
